FAERS Safety Report 9485831 (Version 5)
Quarter: 2013Q4

REPORT INFORMATION
  Report Type: Report from Study
  Country: BR (occurrence: BR)
  Receive Date: 20130829
  Receipt Date: 20131129
  Transmission Date: 20140711
  Serious: Yes (Other)
  Sender: FDA-Public Use
  Company Number: PHHY2013BR092521

PATIENT
  Sex: Female

DRUGS (4)
  1. FORASEQ [Suspect]
     Indication: ASTHMA
     Dosage: 12/400 MCG, 60 CAP, 12 IN 12 HOURS
  2. FORASEQ [Suspect]
     Dosage: 12/200 MCG, 60+60 CAP, 12 IN 12 HOURS
  3. FORASEQ [Suspect]
     Dosage: 12/400 MCG, 60 CAP, 12 IN 12 HOURS
  4. ANCORON [Suspect]
     Indication: CARDIAC DISORDER
     Dosage: 200 MG, UNK

REACTIONS (13)
  - Cardiomyopathy [Not Recovered/Not Resolved]
  - Local swelling [Recovered/Resolved]
  - Hyperthyroidism [Recovered/Resolved]
  - Urinary tract infection [Recovered/Resolved]
  - Malaise [Unknown]
  - Cardiac disorder [Recovered/Resolved]
  - Glossitis [Not Recovered/Not Resolved]
  - Tongue discolouration [Not Recovered/Not Resolved]
  - Incorrect route of drug administration [Unknown]
  - Asthma [Recovered/Resolved]
  - Muscle spasms [Not Recovered/Not Resolved]
  - Blood pressure increased [Recovered/Resolved]
  - Drug ineffective [Recovered/Resolved]
